FAERS Safety Report 5481415-X (Version None)
Quarter: 2007Q4

REPORT INFORMATION
  Report Type: 
  Country: None (occurrence: None)
  Receive Date: 20071010
  Receipt Date: 20071009
  Transmission Date: 20080405
  Serious: Yes (Other)
  Sender: FDA-Public Use
  Company Number: A0686683A

PATIENT
  Sex: Female

DRUGS (2)
  1. WELLBUTRIN XL [Suspect]
     Indication: DEPRESSION
     Dosage: 150MG PER DAY
     Route: 048
     Dates: start: 20060801, end: 20071007
  2. LEVOXYL [Concomitant]

REACTIONS (7)
  - ANXIETY [None]
  - DYSGRAPHIA [None]
  - ELEVATED MOOD [None]
  - ENERGY INCREASED [None]
  - FEELING ABNORMAL [None]
  - INSOMNIA [None]
  - PHARMACEUTICAL PRODUCT COMPLAINT [None]
